FAERS Safety Report 24332499 (Version 1)
Quarter: 2024Q3

REPORT INFORMATION
  Report Type: Report from Study
  Country: IE (occurrence: IE)
  Receive Date: 20240918
  Receipt Date: 20240918
  Transmission Date: 20241016
  Serious: Yes (Other)
  Sender: MYLAN
  Company Number: IE-MYLANLABS-2024M1084176

PATIENT
  Age: 26 Year
  Sex: Male

DRUGS (26)
  1. GABAPENTIN [Suspect]
     Active Substance: GABAPENTIN
     Indication: Post-traumatic headache
     Dosage: UNK
     Route: 065
  2. GABAPENTIN [Suspect]
     Active Substance: GABAPENTIN
     Indication: Migraine prophylaxis
  3. LAMOTRIGINE [Suspect]
     Active Substance: LAMOTRIGINE
     Indication: Post-traumatic headache
     Dosage: UNK
     Route: 065
  4. LAMOTRIGINE [Suspect]
     Active Substance: LAMOTRIGINE
     Indication: Migraine prophylaxis
  5. PREGABALIN [Suspect]
     Active Substance: PREGABALIN
     Indication: Post-traumatic headache
     Dosage: UNK
     Route: 065
  6. PREGABALIN [Suspect]
     Active Substance: PREGABALIN
     Indication: Migraine prophylaxis
  7. VERAPAMIL [Suspect]
     Active Substance: VERAPAMIL HYDROCHLORIDE
     Indication: Post-traumatic headache
     Dosage: UNK
     Route: 065
  8. VERAPAMIL [Suspect]
     Active Substance: VERAPAMIL HYDROCHLORIDE
     Indication: Migraine prophylaxis
  9. AMITRIPTYLINE [Suspect]
     Active Substance: AMITRIPTYLINE
     Indication: Post-traumatic headache
     Dosage: UNK
     Route: 065
  10. AMITRIPTYLINE [Suspect]
     Active Substance: AMITRIPTYLINE
     Indication: Migraine prophylaxis
  11. BOTOX [Suspect]
     Active Substance: ONABOTULINUMTOXINA
     Indication: Post-traumatic headache
     Dosage: UNK
     Route: 065
  12. BOTOX [Suspect]
     Active Substance: ONABOTULINUMTOXINA
     Indication: Migraine prophylaxis
  13. FLUNARIZINE [Suspect]
     Active Substance: FLUNARIZINE
     Indication: Post-traumatic headache
     Dosage: UNK
     Route: 065
  14. FLUNARIZINE [Suspect]
     Active Substance: FLUNARIZINE
     Indication: Migraine prophylaxis
  15. INDOMETHACIN [Suspect]
     Active Substance: INDOMETHACIN
     Indication: Post-traumatic headache
     Dosage: UNK
     Route: 065
  16. INDOMETHACIN [Suspect]
     Active Substance: INDOMETHACIN
     Indication: Migraine prophylaxis
  17. MAGNESIUM [Suspect]
     Active Substance: MAGNESIUM
     Indication: Post-traumatic headache
     Dosage: UNK
     Route: 065
  18. MAGNESIUM [Suspect]
     Active Substance: MAGNESIUM
     Indication: Migraine prophylaxis
  19. NORTRIPTYLINE [Suspect]
     Active Substance: NORTRIPTYLINE
     Indication: Post-traumatic headache
     Dosage: UNK
     Route: 065
  20. NORTRIPTYLINE [Suspect]
     Active Substance: NORTRIPTYLINE
     Indication: Migraine prophylaxis
  21. PROPRANOLOL [Suspect]
     Active Substance: PROPRANOLOL HYDROCHLORIDE
     Indication: Post-traumatic headache
     Dosage: UNK
     Route: 065
  22. PROPRANOLOL [Suspect]
     Active Substance: PROPRANOLOL HYDROCHLORIDE
     Indication: Migraine prophylaxis
  23. TOPIRAMATE [Suspect]
     Active Substance: TOPIRAMATE
     Indication: Post-traumatic headache
     Dosage: UNK
     Route: 065
  24. TOPIRAMATE [Suspect]
     Active Substance: TOPIRAMATE
     Indication: Migraine prophylaxis
  25. VALPROATE [Suspect]
     Active Substance: VALPROIC ACID
     Indication: Post-traumatic headache
     Dosage: UNK
     Route: 065
  26. VALPROATE [Suspect]
     Active Substance: VALPROIC ACID
     Indication: Migraine prophylaxis

REACTIONS (2)
  - Treatment failure [Unknown]
  - Off label use [Unknown]
